FAERS Safety Report 10255315 (Version 1)
Quarter: 2014Q2

REPORT INFORMATION
  Report Type: Spontaneous
  Country: US (occurrence: US)
  Receive Date: 20140624
  Receipt Date: 20140624
  Transmission Date: 20141212
  Serious: No
  Sender: FDA-Public Use
  Company Number: US-PFIZER INC-2014170175

PATIENT
  Age: 63 Year
  Sex: Female
  Weight: 85.71 kg

DRUGS (6)
  1. TOVIAZ [Suspect]
     Indication: HYPERTONIC BLADDER
     Dosage: 4 MG, DAILY
     Dates: start: 2014, end: 201404
  2. TOVIAZ [Suspect]
     Dosage: 8 MG, DAILY
     Dates: start: 201404, end: 201404
  3. TOVIAZ [Suspect]
     Dosage: 4 MG, DAILY
     Dates: start: 201404
  4. LISINOPRIL [Concomitant]
     Indication: HYPERTENSION
     Dosage: 10 TO 12 MG
  5. OMEPRAZOLE [Concomitant]
     Indication: GASTROOESOPHAGEAL REFLUX DISEASE
     Dosage: UNK
  6. ALOE BARBADENSIS [Concomitant]
     Dosage: UNK, DAILY

REACTIONS (2)
  - Cystitis interstitial [Unknown]
  - Drug intolerance [Unknown]
